FAERS Safety Report 4498832-7 (Version None)
Quarter: 2004Q4

REPORT INFORMATION
  Report Type: 
  Country: None (occurrence: None)
  Receive Date: 20041108
  Receipt Date: 20041103
  Transmission Date: 20050328
  Serious: Yes (Other)
  Sender: FDA-Public Use
  Company Number: 2004068939

PATIENT
  Age: 27 Year
  Sex: Female
  Weight: 68.0396 kg

DRUGS (8)
  1. ZYRTEC (TABLETS) (CETIRIZINE) [Suspect]
     Indication: MULTIPLE ALLERGIES
     Dosage: (1 IN 1 D), ORAL
     Route: 048
     Dates: start: 20040917, end: 20040918
  2. ZYRTEC (TABLETS) (CETIRIZINE) [Suspect]
     Indication: SEASONAL ALLERGY
     Dosage: (1 IN 1 D), ORAL
     Route: 048
     Dates: start: 20040917, end: 20040918
  3. ZYRTEC (TABLETS) (CETIRIZINE) [Suspect]
     Indication: SINUSITIS
     Dosage: (1 IN 1 D), ORAL
     Route: 048
     Dates: start: 20040917, end: 20040918
  4. CO-TYLENOL (CHLORPHENAMINE MALEATE, PARACETAMOL, PSEUDOEPHEDRINE  HYDR [Suspect]
     Indication: MULTIPLE ALLERGIES
     Dosage: (3 IN 1 D), ORAL
     Route: 048
     Dates: start: 20040918, end: 20040918
  5. CO-TYLENOL (CHLORPHENAMINE MALEATE, PARACETAMOL, PSEUDOEPHEDRINE  HYDR [Suspect]
     Indication: RESPIRATORY TRACT CONGESTION
     Dosage: (3 IN 1 D), ORAL
     Route: 048
     Dates: start: 20040918, end: 20040918
  6. CO-TYLENOL (CHLORPHENAMINE MALEATE, PARACETAMOL, PSEUDOEPHEDRINE  HYDR [Suspect]
     Indication: SEASONAL ALLERGY
     Dosage: (3 IN 1 D), ORAL
     Route: 048
     Dates: start: 20040918, end: 20040918
  7. CO-TYLENOL (CHLORPHENAMINE MALEATE, PARACETAMOL, PSEUDOEPHEDRINE  HYDR [Suspect]
     Indication: SINUSITIS
     Dosage: (3 IN 1 D), ORAL
     Route: 048
     Dates: start: 20040918, end: 20040918
  8. ACETAMINOPHEN [Concomitant]

REACTIONS (4)
  - BLEEDING TIME ABNORMAL [None]
  - CONVULSION [None]
  - DRUG EXPOSURE DURING PREGNANCY [None]
  - PREGNANCY [None]
